FAERS Safety Report 5828105-9 (Version None)
Quarter: 2008Q3

REPORT INFORMATION
  Report Type: 
  Country: None (occurrence: None)
  Receive Date: 20080731
  Receipt Date: 20080729
  Transmission Date: 20090109
  Serious: Yes (Hospitalization)
  Sender: FDA-Public Use
  Company Number: JP-SP-2008-02461

PATIENT
  Age: 71 Year
  Sex: Male

DRUGS (1)
  1. IMMUCYST [Suspect]
     Indication: BLADDER CANCER
     Route: 043
     Dates: start: 20080513, end: 20080701

REACTIONS (7)
  - CYSTITIS NONINFECTIVE [None]
  - DYSURIA [None]
  - HAEMATURIA [None]
  - INSOMNIA [None]
  - POLLAKIURIA [None]
  - URGE INCONTINENCE [None]
  - WHITE BLOOD CELLS URINE POSITIVE [None]
